FAERS Safety Report 7051482-0 (Version None)
Quarter: 2010Q4

REPORT INFORMATION
  Report Type: 
  Country: None (occurrence: None)
  Receive Date: 20101019
  Receipt Date: 20100930
  Transmission Date: 20110411
  Serious: No
  Sender: FDA-Public Use
  Company Number: B0677554A

PATIENT
  Age: 76 Year
  Sex: Female

DRUGS (7)
  1. CLENIL MODULITE [Suspect]
     Indication: ASTHMA
     Dosage: 2PUFF TWICE PER DAY
     Route: 055
  2. BENDROFLUAZIDE [Concomitant]
     Route: 065
  3. ATORVASTATIN [Concomitant]
     Route: 065
  4. SALMETEROL [Concomitant]
     Route: 065
  5. ESOMEPRAZOLE [Concomitant]
     Route: 065
  6. IPRATROPIUM BROMIDE [Concomitant]
     Route: 065
  7. SALBUTAMOL [Concomitant]

REACTIONS (2)
  - NO ADVERSE EVENT [None]
  - PRODUCT QUALITY ISSUE [None]
